FAERS Safety Report 18496044 (Version 1)
Quarter: 2020Q4

REPORT INFORMATION
  Report Type: Spontaneous
  Country: US (occurrence: US)
  Receive Date: 20201112
  Receipt Date: 20201112
  Transmission Date: 20210114
  Serious: Yes (Life-Threatening, Other)
  Sender: FDA-Public Use
  Company Number: None

PATIENT
  Age: 35 Year
  Sex: Female
  Weight: 75.75 kg

DRUGS (13)
  1. NEXPLANON [Suspect]
     Active Substance: ETONOGESTREL
  2. LINZESS [Concomitant]
     Active Substance: LINACLOTIDE
  3. BUSPAR/BUSPIRONE [Concomitant]
  4. GINKGO BILOBA [Concomitant]
     Active Substance: GINKGO
  5. ZOLOFT [Concomitant]
     Active Substance: SERTRALINE HYDROCHLORIDE
  6. FAMOTIDINE. [Concomitant]
     Active Substance: FAMOTIDINE
  7. VITAMIN B COMPLEX [Concomitant]
     Active Substance: CYANOCOBALAMIN\DEXPANTHENOL\NIACINAMIDE\PYRIDOXINE HYDROCHLORIDE\RIBOFLAVIN 5^-PHOSPHATE SODIUM\THIAMINE HYDROCHLORIDE\VITAMIN B COMPLEX
  8. WOMEN^S ONE A DAY [Concomitant]
     Active Substance: VITAMINS
  9. HAIR,SKIN AND NAILS [Concomitant]
  10. PROBIOTIC CD [Concomitant]
  11. OMEPRAZOLE. [Concomitant]
     Active Substance: OMEPRAZOLE
  12. VITAMIN D [Concomitant]
     Active Substance: VITAMIN D NOS
  13. PRENATAL VITAMINS [Concomitant]
     Active Substance: VITAMINS

REACTIONS (4)
  - Weight increased [None]
  - Vitreous floaters [None]
  - Scar [None]
  - Palpitations [None]

NARRATIVE: CASE EVENT DATE: 20170306
